FAERS Safety Report 5109577-4 (Version None)
Quarter: 2006Q3

REPORT INFORMATION
  Report Type: 
  Country: None (occurrence: None)
  Receive Date: 20060918
  Receipt Date: 20060829
  Transmission Date: 20061208
  Serious: Yes (Other)
  Sender: FDA-Public Use
  Company Number: CA200609002632

PATIENT
  Age: 52 Year
  Sex: Male

DRUGS (5)
  1. CIALIS [Suspect]
  2. FORTEO [Suspect]
     Indication: OSTEOPOROSIS
     Dosage: 20 MG, DAILY (1/D),
     Dates: start: 20060308
  3. FORTEO [Concomitant]
  4. INDAPAMIDE [Concomitant]
  5. CALCIUM (CALCIUM) [Concomitant]

REACTIONS (4)
  - CONDITION AGGRAVATED [None]
  - MICTURITION URGENCY [None]
  - URINE ABNORMALITY [None]
  - VITREOUS FLOATERS [None]
